FAERS Safety Report 6089295-9 (Version None)
Quarter: 2009Q1

REPORT INFORMATION
  Report Type: 
  Country: None (occurrence: None)
  Receive Date: 20090224
  Receipt Date: 20090218
  Transmission Date: 20090719
  Serious: Yes (Other)
  Sender: FDA-Public Use
  Company Number: US-ELI_LILLY_AND_COMPANY-US200902004760

PATIENT
  Sex: Female

DRUGS (1)
  1. BYETTA [Suspect]
     Route: 058
     Dates: start: 20070801, end: 20070801

REACTIONS (1)
  - PEMPHIGOID [None]
